FAERS Safety Report 16955565 (Version 2)
Quarter: 2019Q4

REPORT INFORMATION
  Report Type: Spontaneous
  Country: IT (occurrence: IT)
  Receive Date: 20191024
  Receipt Date: 20191121
  Transmission Date: 20200122
  Serious: Yes (Hospitalization, Other)
  Sender: FDA-Public Use
  Company Number: IT-ACCORD-158579

PATIENT
  Age: 38 Year
  Sex: Female

DRUGS (3)
  1. CEFTRIAXONE. [Concomitant]
     Active Substance: CEFTRIAXONE
     Indication: ESCHERICHIA INFECTION
  2. FUROSEMIDE. [Suspect]
     Active Substance: FUROSEMIDE
     Indication: OEDEMA
  3. KETOROLAC [Suspect]
     Active Substance: KETOROLAC TROMETHAMINE
     Indication: BACK PAIN

REACTIONS (1)
  - Oedema [Recovering/Resolving]
